FAERS Safety Report 7458051-9 (Version None)
Quarter: 2011Q2

REPORT INFORMATION
  Report Type: 
  Country: None (occurrence: None)
  Receive Date: 20110504
  Receipt Date: 20110428
  Transmission Date: 20111010
  Serious: Yes (Hospitalization, Other)
  Sender: FDA-Public Use
  Company Number: US-PFIZER INC-2011091883

PATIENT
  Sex: Male
  Weight: 113.38 kg

DRUGS (3)
  1. LIPITOR [Suspect]
     Indication: BLOOD CHOLESTEROL INCREASED
     Dosage: UNK
     Route: 048
     Dates: start: 20060101
  2. HYDRALAZINE [Concomitant]
     Indication: BLOOD PRESSURE
     Dosage: UNK
  3. ACTOS [Concomitant]
     Dosage: UNK

REACTIONS (3)
  - CONFUSIONAL STATE [None]
  - TRANSIENT GLOBAL AMNESIA [None]
  - BRADYPHRENIA [None]
